FAERS Safety Report 8847462 (Version 2)
Quarter: 2012Q4

REPORT INFORMATION
  Report Type: 
  Country: US (occurrence: US)
  Receive Date: 20121018
  Receipt Date: 20121023
  Transmission Date: 20130627
  Serious: No
  Sender: FDA-Public Use
  Company Number: US-VERTEX PHARMACEUTICAL INC.-2012-022940

PATIENT
  Age: 55 None
  Sex: Male
  Weight: 97 kg

DRUGS (6)
  1. INCIVEK [Suspect]
     Indication: HEPATITIS C
     Dosage: 750 mg, tid
     Route: 048
     Dates: start: 20120831
  2. RIBAVIRIN [Suspect]
     Indication: HEPATITIS C
     Dosage: 600 mg, bid
     Route: 048
     Dates: start: 20120831
  3. PEGASYS [Suspect]
     Indication: HEPATITIS C
     Dosage: 180 ?g, UNK
     Route: 058
     Dates: start: 20120831
  4. HYDROCODONE [Concomitant]
     Indication: BACK PAIN
     Dosage: 7.5/325mg, prn
     Route: 048
  5. LISINOPRIL [Concomitant]
     Indication: HYPERTENSION
     Dosage: 20 mg, qd
     Route: 048
  6. ONDANSETRON [Concomitant]
     Indication: NAUSEA
     Dosage: 4 mg, prn
     Route: 048

REACTIONS (7)
  - Dizziness [Unknown]
  - Irritability [Unknown]
  - Abdominal discomfort [Not Recovered/Not Resolved]
  - Alopecia [Unknown]
  - Asthenia [Not Recovered/Not Resolved]
  - Nausea [Unknown]
  - Rash [Unknown]
